FAERS Safety Report 22647128 (Version 1)
Quarter: 2023Q2

REPORT INFORMATION
  Report Type: Spontaneous
  Country: US (occurrence: US)
  Receive Date: 20230627
  Receipt Date: 20230627
  Transmission Date: 20230721
  Serious: No
  Sender: FDA-Public Use
  Company Number: US-JUBILANT CADISTA PHARMACEUTICALS-2022JUB00253

PATIENT
  Sex: Female

DRUGS (3)
  1. MECLIZINE HYDROCHLORIDE [Suspect]
     Active Substance: MECLIZINE HYDROCHLORIDE
     Indication: Meniere^s disease
     Dosage: 25 MG, ONE TABLET, EVERY 4 TO 6 HOURS OR ONCE EVERY 8 HOURS
  2. UNSPECIFIED INGREDIENT [Suspect]
     Active Substance: UNSPECIFIED INGREDIENT
     Indication: Meniere^s disease
  3. UNSPECIFIED INGREDIENT [Suspect]
     Active Substance: UNSPECIFIED INGREDIENT
     Indication: Meniere^s disease

REACTIONS (2)
  - Tinnitus [Not Recovered/Not Resolved]
  - Therapeutic product effect incomplete [Unknown]
